FAERS Safety Report 9745392 (Version 3)
Quarter: 2014Q1

REPORT INFORMATION
  Report Type: Spontaneous
  Country: JP (occurrence: JP)
  Receive Date: 20131211
  Receipt Date: 20140106
  Transmission Date: 20141002
  Serious: Yes (Other)
  Sender: FDA-Public Use
  Company Number: PHHY2013JP144201

PATIENT
  Age: 78 Year
  Sex: Male

DRUGS (4)
  1. NEORAL [Suspect]
     Indication: INTERSTITIAL LUNG DISEASE
     Dosage: 150 MG IN TWO DIVIDED DOSES
     Route: 048
     Dates: end: 20131204
  2. NEORAL [Suspect]
     Indication: POLYMYOSITIS
  3. NEORAL [Suspect]
     Indication: OFF LABEL USE
  4. PREDONINE [Suspect]
     Dosage: 15 MG, DAILY
     Route: 048

REACTIONS (2)
  - Gastrointestinal perforation [Recovered/Resolved]
  - Oral administration complication [Unknown]
